FAERS Safety Report 10332610 (Version 4)
Quarter: 2014Q4

REPORT INFORMATION
  Report Type: Spontaneous
  Country: JP (occurrence: JP)
  Receive Date: 20140722
  Receipt Date: 20141117
  Transmission Date: 20150528
  Serious: Yes (Hospitalization, Other)
  Sender: FDA-Public Use
  Company Number: JP-GLAXOSMITHKLINE-B1015690A

PATIENT
  Age: 88 Year
  Sex: Female
  Weight: 44 kg

DRUGS (16)
  1. BENZFORE [Concomitant]
     Active Substance: PROPIVERINE HYDROCHLORIDE
     Dosage: 20 MG, QD
  2. BIOFERMIN [Concomitant]
     Active Substance: BACILLUS SUBTILIS\LACTOBACILLUS ACIDOPHILUS\STREPTOCOCCUS FAECAIS
     Dosage: 1 DF, TID
  3. VALACICLOVIR HYDROCHLORIDE [Suspect]
     Active Substance: VALACYCLOVIR HYDROCHLORIDE
     Indication: HERPES ZOSTER
     Dosage: 1000 MG, TID
     Route: 048
     Dates: start: 20140707, end: 20140709
  4. BROTIZOLAM [Concomitant]
     Active Substance: BROTIZOLAM
     Dosage: 0.25 MG, QD
  5. UNISIA [Concomitant]
     Active Substance: AMLODIPINE BESYLATE\CANDESARTAN CILEXETIL
     Dosage: 1 DF, QD
  6. REBAMIPIDE [Concomitant]
     Active Substance: REBAMIPIDE
     Dosage: 100 MG, TID
  7. MAGLAX [Concomitant]
     Active Substance: MAGNESIUM OXIDE
     Dosage: 330 MG, QD
  8. PALGIN [Concomitant]
     Active Substance: AMINOPYRINE\ANTIPYRINE\CAFFEINE\PHENACETIN
     Dosage: 0.5 MG, QD
  9. URSODEOXYCHOLIC ACID [Concomitant]
     Active Substance: URSODIOL
     Dosage: 100 MG, TID
  10. VOLTAREN [Concomitant]
     Active Substance: DICLOFENAC SODIUM
     Dosage: UNK, BID
  11. MEDICON [Concomitant]
     Active Substance: DEXTROMETHORPHAN HYDROBROMIDE
     Dosage: 15 MG, TID
  12. LAFUTIDINE [Concomitant]
     Active Substance: LAFUTIDINE
     Dosage: 10 MG, BID
  13. CHINESE MEDICINE [Concomitant]
     Active Substance: UNSPECIFIED INGREDIENT
     Dosage: 2.5 G, BID
  14. UNDEPRE [Concomitant]
     Active Substance: TRAZODONE HYDROCHLORIDE
     Dosage: 25 MG, QD
  15. SENNOSIDE [Concomitant]
     Active Substance: SENNOSIDES
     Dosage: 24 MG, QD
  16. LOXOPROFEN NA [Concomitant]
     Active Substance: LOXOPROFEN SODIUM
     Dosage: 60 MG, BID

REACTIONS (22)
  - Renal impairment [Unknown]
  - Cerebral atrophy [Unknown]
  - Toxic encephalopathy [Recovering/Resolving]
  - Pyrexia [Unknown]
  - Oliguria [Recovering/Resolving]
  - Restlessness [Unknown]
  - Acute kidney injury [Recovering/Resolving]
  - Refusal of treatment by patient [Unknown]
  - Somnolence [Unknown]
  - Urine output decreased [Recovering/Resolving]
  - Overdose [Unknown]
  - C-reactive protein increased [Unknown]
  - Depressed level of consciousness [Recovering/Resolving]
  - Dehydration [Unknown]
  - Malaise [Unknown]
  - Mental impairment [Recovered/Resolved]
  - Confusional state [Unknown]
  - Delirium [Unknown]
  - Blood potassium increased [Unknown]
  - Speech disorder [Unknown]
  - Ill-defined disorder [Recovered/Resolved]
  - Movement disorder [Unknown]

NARRATIVE: CASE EVENT DATE: 20140710
